FAERS Safety Report 7647992-5 (Version None)
Quarter: 2011Q3

REPORT INFORMATION
  Report Type: 
  Country: None (occurrence: None)
  Receive Date: 20110801
  Receipt Date: 20110511
  Transmission Date: 20111222
  Serious: No
  Sender: FDA-Public Use
  Company Number: US-ABBOTT-11P-163-0804564-00

PATIENT
  Age: 60 Year
  Sex: Male

DRUGS (1)
  1. PANCREATIN TRIPLE STRENGTH CAP [Suspect]
     Indication: PANCREATITIS CHRONIC
     Dosage: DAILY DOSE:  UNKNOWN, AS USED: 48000 IU, FREQUENCY: WITH EACH MEAL
     Route: 065

REACTIONS (1)
  - ABDOMINAL PAIN UPPER [None]
